FAERS Safety Report 5905475-4 (Version None)
Quarter: 2008Q4

REPORT INFORMATION
  Report Type: 
  Country: None (occurrence: None)
  Receive Date: 20081001
  Receipt Date: 20081001
  Transmission Date: 20090506
  Serious: Yes (Hospitalization)
  Sender: FDA-Public Use
  Company Number: None

PATIENT
  Sex: Female
  Weight: 65 kg

DRUGS (12)
  1. CARBOPLATIN [Suspect]
     Dosage: 375 MG
     Dates: end: 20080910
  2. TAXOL [Suspect]
     Dosage: 287 MG
     Dates: end: 20080910
  3. ASPIRIN [Concomitant]
  4. CIPROFLOXACIN HCL [Concomitant]
  5. COMPAZINE PRN [Concomitant]
  6. HYDROCHLOROTHIAZIDE [Concomitant]
  7. LASIX [Concomitant]
  8. IODINE [Concomitant]
  9. METOPROLOL TARTRATE [Concomitant]
  10. PEPCID [Concomitant]
  11. REMERON [Concomitant]
  12. SIMVASTATIN [Concomitant]

REACTIONS (10)
  - ANAEMIA [None]
  - ASTHENIA [None]
  - BLOOD POTASSIUM DECREASED [None]
  - HYPOPHAGIA [None]
  - HYPOTENSION [None]
  - NEUTROPENIA [None]
  - NEUTROPHIL COUNT INCREASED [None]
  - PERFORMANCE STATUS DECREASED [None]
  - WHITE BLOOD CELL COUNT DECREASED [None]
  - WHITE BLOOD CELL COUNT INCREASED [None]
